FAERS Safety Report 4842324-X (Version None)
Quarter: 2005Q4

REPORT INFORMATION
  Report Type: 
  Country: None (occurrence: None)
  Receive Date: 20051129
  Receipt Date: 20051116
  Transmission Date: 20060501
  Serious: Yes (Death)
  Sender: FDA-Public Use
  Company Number: 2005141290

PATIENT
  Age: 78 Year
  Sex: Female

DRUGS (8)
  1. UNASYN [Suspect]
     Indication: URINARY TRACT INFECTION BACTERIAL
     Dosage: 4.5 GRAM (TID), INTRAVENOUS
     Route: 042
     Dates: start: 20050927, end: 20051003
  2. FIRSTCIN (CEFOZOPRAN HYDROCHLORIDE) [Suspect]
     Indication: URINARY TRACT INFECTION BACTERIAL
     Dosage: 2 GRAM (BID), INTRAVENOUS
     Route: 042
     Dates: start: 20050927, end: 20051006
  3. LASIX [Concomitant]
  4. TENORMIN [Concomitant]
  5. LAXOBERON (SODIUM PICOSULFATE) [Concomitant]
  6. ALLOPURINOL [Concomitant]
  7. CEFOTIAM HYDROCHLORIDE [Concomitant]
  8. CARBENIN (BETAMIPRON, PANIPENEM) [Concomitant]

REACTIONS (4)
  - AGRANULOCYTOSIS [None]
  - DISSEMINATED INTRAVASCULAR COAGULATION [None]
  - RASH [None]
  - SEPSIS [None]
